FAERS Safety Report 12220545 (Version 1)
Quarter: 2016Q1

REPORT INFORMATION
  Report Type: Spontaneous
  Country: US (occurrence: US)
  Receive Date: 20160330
  Receipt Date: 20160330
  Transmission Date: 20160526
  Serious: No
  Sender: FDA-Public Use
  Company Number: US-MYLANLABS-2015M1034501

PATIENT
  Sex: Male
  Weight: 79.37 kg

DRUGS (2)
  1. HYDROCORTISONE. [Concomitant]
     Active Substance: HYDROCORTISONE
     Dosage: UNK
  2. EMSAM [Suspect]
     Active Substance: SELEGILINE
     Indication: DEPRESSION
     Dosage: 9 MG, QD
     Route: 062
     Dates: start: 201507

REACTIONS (1)
  - Rash [Not Recovered/Not Resolved]
